FAERS Safety Report 11433365 (Version 1)
Quarter: 2015Q3

REPORT INFORMATION
  Report Type: Spontaneous
  Country: FR (occurrence: FR)
  Receive Date: 20150830
  Receipt Date: 20150830
  Transmission Date: 20151125
  Serious: Yes (Hospitalization, Other)
  Sender: FDA-Public Use
  Company Number: FR-AMGEN-FRASP2015087969

PATIENT
  Age: 43 Year
  Sex: Female

DRUGS (14)
  1. SPOTOF [Concomitant]
     Active Substance: TRANEXAMIC ACID
     Dosage: UNK
     Dates: start: 201308
  2. RILMENIDINE MYLAN [Concomitant]
     Dosage: 1 MG, 2X/DAY
     Dates: start: 201310
  3. AMLODIPINE MYLAN [Concomitant]
     Dosage: 5 MG, 1X/DAY
     Dates: start: 201310
  4. DEPAKINE                           /00228501/ [Concomitant]
     Active Substance: VALPROIC ACID
     Dosage: 500 MG, 3X/DAY
  5. ALLOPURINOL MYLAN [Concomitant]
     Active Substance: ALLOPURINOL
     Dosage: 200 MG, DAILY
     Dates: start: 20150321
  6. VOLTAREN [Concomitant]
     Active Substance: DICLOFENAC SODIUM
     Dosage: 75 MG, 1X/DAY
     Dates: start: 201308
  7. ALPRAZOLAM MYLAN [Concomitant]
     Active Substance: ALPRAZOLAM
     Dosage: 0.5 MG, 2X/DAY
     Dates: start: 201309
  8. CETIRIZINE                         /00884302/ [Concomitant]
     Active Substance: CETIRIZINE HYDROCHLORIDE
     Dosage: 10 MG, 2X/DAY
     Dates: start: 201409
  9. ENBREL [Suspect]
     Active Substance: ETANERCEPT
     Indication: RHEUMATOID ARTHRITIS
     Dosage: 1 DF, WEEKLY
     Route: 058
     Dates: start: 201210, end: 201505
  10. ESOMEPRAZOLE MYLAN                 /01479301/ [Concomitant]
     Dosage: 40 MG, 1X/DAY
     Dates: start: 201309
  11. TRAMADOL MYLAN [Concomitant]
     Active Substance: TRAMADOL
     Dosage: 50 MG, 1X/DAY
  12. UVEDOSE [Concomitant]
     Active Substance: CHOLECALCIFEROL
     Dosage: 100 000 UNITS EVERY THREE MONTHS
  13. TRAMADOL MYLAN [Concomitant]
     Active Substance: TRAMADOL
     Dosage: 200 MG, 2X/DAY
  14. COLCHICINE OPOCALCIUM [Concomitant]
     Active Substance: COLCHICINE
     Dosage: 1 MG, 1X/DAY
     Dates: start: 201411

REACTIONS (1)
  - Granulomatous liver disease [Not Recovered/Not Resolved]

NARRATIVE: CASE EVENT DATE: 201501
